FAERS Safety Report 5317739-6 (Version None)
Quarter: 2007Q2

REPORT INFORMATION
  Report Type: 
  Country: None (occurrence: None)
  Receive Date: 20070503
  Receipt Date: 20070503
  Transmission Date: 20071010
  Serious: No
  Sender: FDA-Public Use
  Company Number: None

PATIENT
  Sex: Female
  Weight: 96.6162 kg

DRUGS (2)
  1. ZELNORM [Suspect]
     Indication: IRRITABLE BOWEL SYNDROME
     Dosage: 1 TAB TWICE DAILY PO
     Route: 048
     Dates: start: 20050202, end: 20070202
  2. ZELNORM [Suspect]

REACTIONS (1)
  - MYOCARDIAL INFARCTION [None]
